FAERS Safety Report 5366478-4 (Version None)
Quarter: 2007Q2

REPORT INFORMATION
  Report Type: 
  Country: None (occurrence: None)
  Receive Date: 20070622
  Receipt Date: 20070615
  Transmission Date: 20071010
  Serious: Yes (Hospitalization, Other)
  Sender: FDA-Public Use
  Company Number: PHEH2005US11031

PATIENT
  Sex: Female

DRUGS (4)
  1. ESTRADERM [Suspect]
     Indication: OSTEOPOROSIS PROPHYLAXIS
     Dosage: 0.05 MG, UNK
     Route: 062
     Dates: start: 19920101, end: 19980101
  2. PREMPRO [Suspect]
     Indication: OSTEOPOROSIS PROPHYLAXIS
     Dosage: .625/2.5 MG
     Route: 048
     Dates: start: 19981201, end: 20021001
  3. PROVERA [Suspect]
     Indication: OSTEOPOROSIS PROPHYLAXIS
     Dosage: 2.5 MG, UNK
     Route: 048
     Dates: start: 19920101, end: 19980101
  4. MEDROXYPROGESTERONE [Suspect]
     Indication: HORMONE REPLACEMENT THERAPY
     Dates: start: 19970101, end: 20020101

REACTIONS (35)
  - ABDOMINAL PAIN [None]
  - BACK PAIN [None]
  - BASAL CELL CARCINOMA [None]
  - BLOOD CHOLESTEROL INCREASED [None]
  - BREAST CANCER STAGE I [None]
  - BREAST CANCER STAGE II [None]
  - BREAST MASS [None]
  - BREAST NECROSIS [None]
  - CHEMOTHERAPY [None]
  - DYSPNOEA EXERTIONAL [None]
  - EMBOLISM [None]
  - EMPHYSEMA [None]
  - ENDOSCOPY UPPER GASTROINTESTINAL TRACT [None]
  - EPIDURAL ANAESTHESIA [None]
  - GASTRITIS [None]
  - HEPATIC STEATOSIS [None]
  - HIP ARTHROPLASTY [None]
  - HYPERTENSION [None]
  - HYPOXIA [None]
  - INTERSTITIAL LUNG DISEASE [None]
  - LYMPH NODE CANCER METASTATIC [None]
  - LYMPHADENECTOMY [None]
  - LYMPHOCYTE COUNT INCREASED [None]
  - MALIGNANT BREAST LUMP REMOVAL [None]
  - NAUSEA [None]
  - OESTROGEN RECEPTOR ASSAY POSITIVE [None]
  - OSTEOARTHRITIS [None]
  - PLEURAL FIBROSIS [None]
  - PROGESTERONE RECEPTOR ASSAY POSITIVE [None]
  - RADIOTHERAPY [None]
  - RENAL CYST [None]
  - SKIN LESION EXCISION [None]
  - SPINAL DECOMPRESSION [None]
  - SPINAL OSTEOARTHRITIS [None]
  - ULTRASOUND ABDOMEN ABNORMAL [None]
